FAERS Safety Report 24692867 (Version 1)
Quarter: 2024Q4

REPORT INFORMATION
  Report Type: Spontaneous
  Country: FR (occurrence: FR)
  Receive Date: 20241203
  Receipt Date: 20241203
  Transmission Date: 20250115
  Serious: Yes (Other)
  Sender: SANDOZ
  Company Number: None

PATIENT
  Age: 49 Year
  Sex: Female

DRUGS (2)
  1. DEXAMETHASONE\OXYTETRACYCLINE [Suspect]
     Active Substance: DEXAMETHASONE\OXYTETRACYCLINE
     Indication: Eye inflammation
     Dosage: 1 DF, BID, 1 DOSAGE FORM, Q12H (POMMADE OPHTALMIQUE EN R?CIPIENT UNIDOSE, 1 APPLICATION 2/J)
     Route: 031
     Dates: start: 20240828, end: 20240911
  2. TOBRADEX [Suspect]
     Active Substance: DEXAMETHASONE\TOBRAMYCIN
     Indication: Eye inflammation
     Dosage: 1 DROP, TID, 1 DRP, Q8H (COLLYRE EN SUSPENSION)
     Route: 031
     Dates: start: 20240828, end: 20241028

REACTIONS (1)
  - Ocular hypertension [Recovered/Resolved]

NARRATIVE: CASE EVENT DATE: 20240925
